FAERS Safety Report 9093523 (Version 2)
Quarter: 2013Q1

REPORT INFORMATION
  Report Type: Spontaneous
  Country: US (occurrence: US)
  Receive Date: 20130218
  Receipt Date: 20130315
  Transmission Date: 20140127
  Serious: Yes (Other)
  Sender: FDA-Public Use
  Company Number: US-ELI_LILLY_AND_COMPANY-US201302003216

PATIENT
  Sex: Female

DRUGS (5)
  1. HUMULIN REGULAR [Suspect]
     Indication: DIABETES MELLITUS
     Dosage: 20 U, BID
     Dates: start: 20120123
  2. HUMALOG LISPRO [Suspect]
     Indication: DIABETES MELLITUS
     Dosage: 60 U, TID
     Dates: start: 1993, end: 20120122
  3. HUMALOG LISPRO [Suspect]
     Indication: DIABETES MELLITUS
     Dosage: 60 U, TID
     Dates: start: 1993, end: 20120122
  4. LANTUS [Concomitant]
     Dosage: 80 U, EACH EVENING
  5. BYETTA [Concomitant]

REACTIONS (6)
  - Insulin resistance [Unknown]
  - Blood glucose increased [Unknown]
  - Dizziness [Unknown]
  - Blood glucose decreased [Unknown]
  - Blood glucose increased [Unknown]
  - Drug ineffective [Unknown]
